FAERS Safety Report 11782151 (Version 1)
Quarter: 2015Q4

REPORT INFORMATION
  Report Type: Report from Study
  Country: US (occurrence: US)
  Receive Date: 20151127
  Receipt Date: 20151127
  Transmission Date: 20160305
  Serious: Yes (Hospitalization, Other)
  Sender: FDA-Public Use
  Company Number: US-ROCHE-1666112

PATIENT
  Age: 55 Year

DRUGS (3)
  1. BEVACIZUMAB [Suspect]
     Active Substance: BEVACIZUMAB
     Indication: NON-SMALL CELL LUNG CANCER
     Dosage: 15MG/KG OVER 30 TO 90 MIN ON DAY 1. CYCLE 4 ONWARDS: 15 MG/KG OVER 30 TO 90 MIN ON DAY 1 ONCE EVERY
     Route: 042
     Dates: start: 20081106
  2. DOCETAXEL. [Suspect]
     Active Substance: DOCETAXEL
     Indication: NON-SMALL CELL LUNG CANCER
     Dosage: 75MG/M2 OVER 60 MINUTES ON DAY1
     Route: 042
     Dates: start: 20081106
  3. CISPLATIN. [Suspect]
     Active Substance: CISPLATIN
     Indication: NON-SMALL CELL LUNG CANCER
     Dosage: 75 MG/M2 OVER 60 MIN ON DAY 1
     Route: 042
     Dates: start: 20081106

REACTIONS (3)
  - Neutrophil count decreased [Recovered/Resolved]
  - Blood creatinine increased [Recovered/Resolved]
  - Lung infection [Recovered/Resolved]

NARRATIVE: CASE EVENT DATE: 20081113
